FAERS Safety Report 5976481-9 (Version None)
Quarter: 2008Q4

REPORT INFORMATION
  Report Type: 
  Country: None (occurrence: None)
  Receive Date: 20081126
  Receipt Date: 20081118
  Transmission Date: 20090506
  Serious: Yes (Other)
  Sender: FDA-Public Use
  Company Number: CHPA2008US20085

PATIENT
  Age: 32 Year
  Sex: Female

DRUGS (1)
  1. EXCEDRIN MIGRAINE (NCH) (CAFFEINE CITRATE, ACETYLSALICYLIC ACID, ACETA [Suspect]
     Indication: MIGRAINE
     Dosage: 2 DF, PRN, ORAL
     Route: 048

REACTIONS (3)
  - ABDOMINAL DISCOMFORT [None]
  - ARRHYTHMIA [None]
  - HEART RATE INCREASED [None]
